FAERS Safety Report 24686556 (Version 1)
Quarter: 2024Q4

REPORT INFORMATION
  Report Type: Spontaneous
  Country: US (occurrence: US)
  Receive Date: 20241202
  Receipt Date: 20241202
  Transmission Date: 20250115
  Serious: Yes (Hospitalization)
  Sender: MYLAN
  Company Number: US-MYLANLABS-2024M1106116

PATIENT
  Age: 46 Year
  Sex: Female

DRUGS (6)
  1. FLUCONAZOLE [Suspect]
     Active Substance: FLUCONAZOLE
     Indication: Disseminated coccidioidomycosis
     Dosage: 400 MILLIGRAM, QD
     Route: 065
  2. FLUCONAZOLE [Suspect]
     Active Substance: FLUCONAZOLE
     Dosage: 800 MILLIGRAM, QD; DOSE INCREASED
     Route: 065
  3. VORICONAZOLE [Suspect]
     Active Substance: VORICONAZOLE
     Indication: Disseminated coccidioidomycosis
     Dosage: 800 MILLIGRAM; RECEIVED VIA PLACEMENT OF AN ARTICULATING CEMENT SPACER DEVICE
     Route: 065
  4. AMPHOTERICIN B DEOXYCHOLATE [Suspect]
     Active Substance: AMPHOTERICIN B DEOXYCHOLATE
     Indication: Disseminated coccidioidomycosis
     Dosage: 400 MILLIGRAM; RECEIVED VIA PLACEMENT OF AN ARTICULATING CEMENT SPACER DEVICE
     Route: 065
  5. TOBRAMYCIN [Concomitant]
     Active Substance: TOBRAMYCIN\TOBRAMYCIN SULFATE
     Indication: Antibiotic prophylaxis
     Dosage: 4.8 GRAM; RECEIVED VIA PLACEMENT OF AN ARTICULATING CEMENT SPACER DEVICE
     Route: 065
  6. VANCOMYCIN [Concomitant]
     Active Substance: VANCOMYCIN
     Indication: Antibiotic prophylaxis
     Dosage: 4 GRAM; RECEIVED VIA PLACEMENT OF AN ARTICULATING CEMENT SPACER DEVICE
     Route: 065

REACTIONS (1)
  - Drug ineffective [Unknown]
